FAERS Safety Report 17973202 (Version 1)
Quarter: 2020Q3

REPORT INFORMATION
  Report Type: Spontaneous
  Country: US (occurrence: US)
  Receive Date: 20200702
  Receipt Date: 20200702
  Transmission Date: 20201103
  Serious: Yes (Hospitalization, Other)
  Sender: FDA-Public Use
  Company Number: US-BRISTOL-MYERS SQUIBB COMPANY-BMS-2020-051887

PATIENT
  Age: 56 Year
  Sex: Male
  Weight: 75.5 kg

DRUGS (3)
  1. COUMADIN [Suspect]
     Active Substance: WARFARIN SODIUM
     Indication: ANTICOAGULANT THERAPY
     Dosage: UNK
     Route: 065
  2. NIVOLUMAB [Concomitant]
     Active Substance: NIVOLUMAB
     Indication: GIANT CELL TUMOUR OF TENDON SHEATH
     Dosage: 240 MILLIGRAM ON DAYS 1, 15, AND 29
     Route: 042
  3. IPILIMUMAB [Concomitant]
     Active Substance: IPILIMUMAB
     Indication: GIANT CELL TUMOUR OF TENDON SHEATH
     Dosage: 1 MILLIGRAM/KILOGRAM
     Route: 042

REACTIONS (4)
  - International normalised ratio increased [Recovering/Resolving]
  - Soft tissue infection [Recovering/Resolving]
  - Pain [Recovering/Resolving]
  - Tumour haemorrhage [Unknown]

NARRATIVE: CASE EVENT DATE: 20200525
